FAERS Safety Report 10026095 (Version 2)
Quarter: 2014Q2

REPORT INFORMATION
  Report Type: Report from Study
  Country: US (occurrence: US)
  Receive Date: 20140320
  Receipt Date: 20140506
  Transmission Date: 20141212
  Serious: Yes (Death)
  Sender: FDA-Public Use
  Company Number: US-TMC-CABO 14004096

PATIENT
  Age: 41 Year
  Sex: Male
  Weight: 132.2 kg

DRUGS (9)
  1. CABOZANTINIB [Suspect]
     Indication: RENAL CANCER METASTATIC
     Dosage: 60 MG, QD
     Route: 048
     Dates: start: 20131022, end: 20131022
  2. CABOZANTINIB [Suspect]
     Dosage: 60 MG,QD
     Route: 048
     Dates: start: 20140102, end: 20140102
  3. CABOZANTINIB [Suspect]
     Dosage: 60 MG, QD
     Route: 048
     Dates: end: 20140205
  4. AMLODIPINE [Concomitant]
  5. DEXAMETHASONE [Concomitant]
  6. GABAPENTIN [Concomitant]
  7. METHADONE [Concomitant]
  8. DILAUDID [Concomitant]
  9. ZOLPIDEM [Concomitant]

REACTIONS (2)
  - Malignant neoplasm progression [Fatal]
  - Off label use [Unknown]
